FAERS Safety Report 20508356 (Version 3)
Quarter: 2022Q3

REPORT INFORMATION
  Report Type: Spontaneous
  Country: US (occurrence: None)
  Receive Date: 20220223
  Receipt Date: 20220922
  Transmission Date: 20221026
  Serious: Yes (Other)
  Sender: FDA-Public Use
  Company Number: 2022A074429

PATIENT
  Age: 59 Year
  Sex: Male
  Weight: 106 kg

DRUGS (39)
  1. NEXIUM [Suspect]
     Active Substance: ESOMEPRAZOLE MAGNESIUM
     Indication: Gastrooesophageal reflux disease
     Route: 048
     Dates: start: 2013, end: 2020
  2. NEXIUM [Suspect]
     Active Substance: ESOMEPRAZOLE MAGNESIUM
     Indication: Gastrooesophageal reflux disease
     Route: 048
     Dates: start: 2013, end: 2020
  3. PRILOSEC [Suspect]
     Active Substance: OMEPRAZOLE MAGNESIUM
     Indication: Gastrooesophageal reflux disease
     Route: 048
     Dates: start: 2013, end: 2020
  4. DEXILANT [Suspect]
     Active Substance: DEXLANSOPRAZOLE
     Indication: Gastrooesophageal reflux disease
     Route: 065
     Dates: start: 2013, end: 2020
  5. DEXILANT [Suspect]
     Active Substance: DEXLANSOPRAZOLE
     Indication: Gastrooesophageal reflux disease
     Route: 065
     Dates: start: 2013
  6. DEXILANT [Suspect]
     Active Substance: DEXLANSOPRAZOLE
     Indication: Gastrooesophageal reflux disease
     Dosage: GENERIC
     Route: 065
     Dates: start: 2016, end: 2018
  7. PROTONIX [Suspect]
     Active Substance: PANTOPRAZOLE SODIUM
     Indication: Gastrooesophageal reflux disease
     Route: 065
     Dates: start: 2013, end: 2020
  8. PROTONIX [Suspect]
     Active Substance: PANTOPRAZOLE SODIUM
     Indication: Gastrooesophageal reflux disease
     Dosage: GENERIC
     Route: 065
     Dates: start: 2018
  9. PREDNISONE [Concomitant]
     Active Substance: PREDNISONE
  10. ALPRAZOLAM [Concomitant]
     Active Substance: ALPRAZOLAM
  11. GABAPENTIN [Concomitant]
     Active Substance: GABAPENTIN
  12. OXYCODONE [Concomitant]
     Active Substance: OXYCODONE
  13. FOLIC ACID [Concomitant]
     Active Substance: FOLIC ACID
  14. RESVERATROL/NICOTINAMIDE/CALCIUM PANTOTHENATE/ACETYLCYSTEINE/THIOCTIC [Concomitant]
  15. SIMVASTATIN [Concomitant]
     Active Substance: SIMVASTATIN
     Indication: Blood cholesterol
  16. LEVAQUIN [Concomitant]
     Active Substance: LEVOFLOXACIN
  17. ALBUTEROL [Concomitant]
     Active Substance: ALBUTEROL
  18. FISH OIL [Concomitant]
     Active Substance: FISH OIL
     Indication: Product communication issue
  19. DIOVAN [Concomitant]
     Active Substance: VALSARTAN
  20. VENTOLIN [Concomitant]
     Active Substance: ALBUTEROL SULFATE
  21. FLONASE [Concomitant]
     Active Substance: FLUTICASONE PROPIONATE
  22. FLUOCINOLONE [Concomitant]
     Active Substance: FLUOCINOLONE
  23. CEFEPIME HYDROCHLORIDE\TAZOBACTAM SODIUM [Concomitant]
     Active Substance: CEFEPIME HYDROCHLORIDE\TAZOBACTAM SODIUM
  24. ZYRTEC [Concomitant]
     Active Substance: CETIRIZINE HYDROCHLORIDE
  25. MIRALAX [Concomitant]
     Active Substance: POLYETHYLENE GLYCOL 3350
  26. VITAMIN D3 [Concomitant]
     Active Substance: CHOLECALCIFEROL
  27. VITAMINS [Concomitant]
     Active Substance: VITAMINS
  28. VALSARTAN [Concomitant]
     Active Substance: VALSARTAN
     Indication: Blood pressure measurement
     Dates: start: 2015
  29. CLINDAMYCIN [Concomitant]
     Active Substance: CLINDAMYCIN
  30. HYDROXYZINE [Concomitant]
     Active Substance: HYDROXYZINE HYDROCHLORIDE
  31. CELECOXIB [Concomitant]
     Active Substance: CELECOXIB
  32. HUMIRA [Concomitant]
     Active Substance: ADALIMUMAB
  33. AZITHROMYCIN [Concomitant]
     Active Substance: AZITHROMYCIN
     Indication: Infection
     Dates: start: 2014
  34. LOSARTAN [Concomitant]
     Active Substance: LOSARTAN
     Indication: Blood pressure measurement
     Dates: start: 2018
  35. TRAMADOL [Concomitant]
     Active Substance: TRAMADOL
     Indication: Pain
  36. DOXYCYCLINE [Concomitant]
     Active Substance: DOXYCYCLINE
     Indication: Infection
     Dates: start: 2014, end: 2020
  37. ALLOPURINOL [Concomitant]
     Active Substance: ALLOPURINOL
     Indication: Gout
     Dates: start: 2016, end: 2017
  38. VITAMIN D [Concomitant]
     Active Substance: VITAMIN D NOS
     Indication: Product communication issue
  39. HERBALS\TURMERIC [Concomitant]
     Active Substance: HERBALS\TURMERIC
     Indication: Product communication issue

REACTIONS (4)
  - Acute kidney injury [Not Recovered/Not Resolved]
  - Chronic kidney disease [Not Recovered/Not Resolved]
  - Renal failure [Unknown]
  - Gastrooesophageal reflux disease [Not Recovered/Not Resolved]

NARRATIVE: CASE EVENT DATE: 20180101
